FAERS Safety Report 6013157-6 (Version None)
Quarter: 2008Q4

REPORT INFORMATION
  Report Type: 
  Country: None (occurrence: None)
  Receive Date: 20081219
  Receipt Date: 20081118
  Transmission Date: 20090506
  Serious: No
  Sender: FDA-Public Use
  Company Number: US-BAYER-200830519NA

PATIENT
  Age: 54 Year
  Sex: Male
  Weight: 88 kg

DRUGS (6)
  1. ULTRAVIST 300 [Suspect]
     Indication: SCAN BRAIN
     Dosage: TOTAL DAILY DOSE: 100 ML
     Route: 042
     Dates: start: 20080725, end: 20080725
  2. LISINOPRIL [Concomitant]
  3. TRIAZOLAM [Concomitant]
  4. COMBIGAN [Concomitant]
  5. ^FEROFFENADIN^ [Concomitant]
  6. LUMIGAN [Concomitant]

REACTIONS (2)
  - URTICARIA [None]
  - WHEEZING [None]
